FAERS Safety Report 6964668-8 (Version None)
Quarter: 2010Q3

REPORT INFORMATION
  Report Type: 
  Country: None (occurrence: None)
  Receive Date: 20100903
  Receipt Date: 20100828
  Transmission Date: 20110219
  Serious: Yes (Hospitalization)
  Sender: FDA-Public Use
  Company Number: US-PFIZER INC-2010108510

PATIENT
  Age: 57 Year
  Sex: Female
  Weight: 95 kg

DRUGS (7)
  1. BLINDED *NO SUBJECT DRUG [Suspect]
     Indication: RENAL CELL CARCINOMA
     Dosage: UNK
     Route: 048
     Dates: start: 20100624, end: 20100717
  2. BLINDED *PLACEBO [Suspect]
     Indication: RENAL CELL CARCINOMA
     Dosage: UNK
     Route: 048
     Dates: start: 20100624, end: 20100717
  3. BLINDED *SORAFENIB [Suspect]
     Indication: RENAL CELL CARCINOMA
     Dosage: UNK
     Route: 048
     Dates: start: 20100624, end: 20100717
  4. SUNITINIB MALATE [Suspect]
     Indication: RENAL CELL CARCINOMA
     Dosage: UNK
     Route: 048
     Dates: start: 20100624, end: 20100717
  5. ZOLOFT [Suspect]
  6. MELOXICAM [Suspect]
  7. VALPROIC ACID [Suspect]

REACTIONS (5)
  - DIPLOPIA [None]
  - DIZZINESS [None]
  - FATIGUE [None]
  - HALLUCINATION [None]
  - MUSCULAR WEAKNESS [None]
